FAERS Safety Report 11772930 (Version 5)
Quarter: 2020Q3

REPORT INFORMATION
  Report Type: Report from Study
  Country: AU (occurrence: AU)
  Receive Date: 20151124
  Receipt Date: 20200323
  Transmission Date: 20201105
  Serious: Yes (Death, Hospitalization, Other)
  Sender: FDA-Public Use
  Company Number: PHHY2015AU149709

PATIENT
  Sex: Male

DRUGS (5)
  1. PASIREOTIDE. [Suspect]
     Active Substance: PASIREOTIDE
     Indication: CARCINOID SYNDROME
     Dosage: UNK
     Route: 065
     Dates: start: 2014
  2. PASIREOTIDE. [Suspect]
     Active Substance: PASIREOTIDE
     Dosage: 60 MG, ONCE/SINGLE
     Route: 030
     Dates: start: 201602
  3. OCTREOTIDE. [Suspect]
     Active Substance: OCTREOTIDE
     Indication: CARCINOID SYNDROME
     Dosage: 500 UG, QH
     Route: 041
  4. EVEROLIMUS. [Suspect]
     Active Substance: EVEROLIMUS
     Indication: METASTATIC CARCINOID TUMOUR
     Dosage: UNK
     Route: 065
     Dates: start: 201502
  5. LUTETIUM (LU 177) [Suspect]
     Active Substance: LUTETIUM LU-177
     Indication: PRODUCT USED FOR UNKNOWN INDICATION
     Dosage: 3 DOSES
     Route: 065
     Dates: start: 201410, end: 201501

REACTIONS (9)
  - Pruritus [Unknown]
  - Metastatic carcinoid tumour [Fatal]
  - Diarrhoea [Unknown]
  - Malignant neoplasm progression [Fatal]
  - Circulatory collapse [Unknown]
  - Loss of consciousness [Unknown]
  - Therapeutic response decreased [Unknown]
  - Flushing [Unknown]
  - Electrocardiogram QT prolonged [Recovered/Resolved]
